FAERS Safety Report 14783762 (Version 1)
Quarter: 2018Q2

REPORT INFORMATION
  Report Type: Spontaneous
  Country: US (occurrence: US)
  Receive Date: 20180420
  Receipt Date: 20180420
  Transmission Date: 20180711
  Serious: Yes (Hospitalization)
  Sender: FDA-Public Use
  Company Number: US-LPDUSPRD-20180619

PATIENT
  Age: 21 Month
  Sex: Female

DRUGS (4)
  1. UNSPECIFIED ANTIHISTAMINE [Concomitant]
     Active Substance: ANTIHISTAMINES NOS
     Dosage: UNKNOWN
     Route: 048
  2. EPINEPHRINE INJECTION, USP (1130-05) [Suspect]
     Active Substance: EPINEPHRINE
     Dosage: 0.01MG/KG
     Route: 030
  3. RACEMIC EPINEPHRINE [Suspect]
     Active Substance: RACEPINEPHRINE
     Dosage: UNKNOWN
     Route: 065
  4. NORMAL SALINE [Concomitant]
     Active Substance: SODIUM CHLORIDE
     Dosage: 3 BOLUSES OF 20 ML/KG
     Route: 040

REACTIONS (4)
  - Incorrect route of drug administration [Unknown]
  - Off label use [Unknown]
  - Cardiomyopathy [Recovering/Resolving]
  - Pulmonary oedema [Unknown]
